FAERS Safety Report 21024194 (Version 6)
Quarter: 2022Q3

REPORT INFORMATION
  Report Type: Report from Study
  Country: US (occurrence: US)
  Receive Date: 20220629
  Receipt Date: 20220917
  Transmission Date: 20221027
  Serious: No
  Sender: FDA-Public Use
  Company Number: US-NOVARTISTESTPH-NVSC2022US148228

PATIENT
  Age: 41 Year
  Sex: Female

DRUGS (2)
  1. KESIMPTA [Suspect]
     Active Substance: OFATUMUMAB
     Indication: Multiple sclerosis
     Dosage: 20 MG, QW
     Route: 058
     Dates: start: 20220608
  2. KESIMPTA [Suspect]
     Active Substance: OFATUMUMAB
     Dosage: 20 MG, QMO
     Route: 058

REACTIONS (6)
  - Paraesthesia [Unknown]
  - Balance disorder [Recovered/Resolved with Sequelae]
  - Oropharyngeal pain [Recovered/Resolved]
  - Alopecia [Unknown]
  - Exposure to SARS-CoV-2 [Unknown]
  - Cough [Unknown]

NARRATIVE: CASE EVENT DATE: 20220608
